FAERS Safety Report 7956623-6 (Version None)
Quarter: 2011Q4

REPORT INFORMATION
  Report Type: 
  Country: None (occurrence: None)
  Receive Date: 20111205
  Receipt Date: 20111130
  Transmission Date: 20120403
  Serious: Yes (Death, Hospitalization)
  Sender: FDA-Public Use
  Company Number: PHHY2011FR105074

PATIENT
  Age: 80 Year
  Sex: Male

DRUGS (8)
  1. CLOZAPINE [Suspect]
     Dosage: 0.25 TABLETS THE EVENING
  2. PREVISCAN [Concomitant]
     Dosage: .25 TO 0.5 TABLETS
  3. POTASSIUM CHLORIDE [Concomitant]
     Dosage: TABLET THE MORNING AND 0.5 TABLETS THE MIDDAY
  4. LASIX [Concomitant]
     Dosage: 60 MG, 40 MG THE MORNING AND 20 MG THE MIDDAY
  5. CLOZAPINE [Suspect]
     Indication: DEMENTIA WITH LEWY BODIES
     Dosage: 1/8 TABLETS FOR 48 HOURS AND THEN AT 1/4 TABLETS
  6. MEMANTINE HYDROCHLORIDE [Concomitant]
     Dosage: 10 MG, BID
  7. ARICEPT [Concomitant]
     Dosage: 10 MG, QD, FOR 3 YEARS
  8. AMLODIPINE [Concomitant]
     Dosage: 10 MG, QD

REACTIONS (6)
  - MALAISE [None]
  - URINARY RETENTION [None]
  - ANURIA [None]
  - DEATH [None]
  - GENERALISED OEDEMA [None]
  - GENERAL PHYSICAL HEALTH DETERIORATION [None]
